FAERS Safety Report 7216334-1 (Version None)
Quarter: 2011Q1

REPORT INFORMATION
  Report Type: 
  Country: None (occurrence: None)
  Receive Date: 20110107
  Receipt Date: 20101231
  Transmission Date: 20110831
  Serious: Yes (Other)
  Sender: FDA-Public Use
  Company Number: GB-JNJFOC-20101000949

PATIENT
  Sex: Male
  Weight: 63.5 kg

DRUGS (3)
  1. RISPERDAL CONSTA [Suspect]
     Indication: SCHIZOPHRENIA, PARANOID TYPE
     Route: 030
  2. RISPERDAL CONSTA [Suspect]
     Route: 030
  3. RISPERDAL CONSTA [Suspect]
     Route: 030

REACTIONS (8)
  - PARANOIA [None]
  - SCHIZOPHRENIA [None]
  - CHEST PAIN [None]
  - CARDIAC OUTPUT INCREASED [None]
  - LEFT VENTRICULAR HYPERTROPHY [None]
  - DRUG INEFFECTIVE [None]
  - ELECTROCARDIOGRAM ABNORMAL [None]
  - PREGNANCY OF PARTNER [None]
